FAERS Safety Report 18498748 (Version 3)
Quarter: 2020Q4

REPORT INFORMATION
  Report Type: Spontaneous
  Country: FR (occurrence: FR)
  Receive Date: 20201112
  Receipt Date: 20201218
  Transmission Date: 20210114
  Serious: Yes (Other)
  Sender: FDA-Public Use
  Company Number: FR-009507513-2011FRA005024

PATIENT
  Age: 34 Year
  Sex: Female
  Weight: 50 kg

DRUGS (3)
  1. NEXPLANON [Suspect]
     Active Substance: ETONOGESTREL
     Dosage: 1 IMPLANT (1 DOSAGE FORM), IN THE LEFT ARM (PATIENT RIGHT HANDED)
     Dates: start: 20200615
  2. NEXPLANON [Suspect]
     Active Substance: ETONOGESTREL
     Dosage: 1 IMPLANT (1 DOSAGE FORM) IN LEFT ARM
  3. NEXPLANON [Suspect]
     Active Substance: ETONOGESTREL
     Dosage: 1 IMPLANT (1 DOSAGE FORM) IN LEFT ARM
     Dates: end: 20200615

REACTIONS (9)
  - Amenorrhoea [Recovered/Resolved]
  - Device placement issue [Not Recovered/Not Resolved]
  - Unintended pregnancy [Recovered/Resolved]
  - Complication associated with device [Not Recovered/Not Resolved]
  - Abortion induced [Unknown]
  - Vacuum aspiration [Unknown]
  - Pregnancy with implant contraceptive [Recovered/Resolved]
  - Induced abortion failed [Unknown]
  - Suspected product quality issue [Unknown]

NARRATIVE: CASE EVENT DATE: 2020
